FAERS Safety Report 9337653 (Version 3)
Quarter: 2014Q1

REPORT INFORMATION
  Report Type: Spontaneous
  Country: US (occurrence: US)
  Receive Date: 20130607
  Receipt Date: 20140205
  Transmission Date: 20141002
  Serious: No
  Sender: FDA-Public Use
  Company Number: US-009507513-1306USA002085

PATIENT
  Age: 55 Year
  Sex: Female
  Weight: 82.86 kg

DRUGS (2)
  1. PEGINTRON [Suspect]
     Indication: HEPATITIS C
     Dosage: UNK REDIPEN
     Route: 058
     Dates: start: 20121227, end: 20130730
  2. PEGINTRON [Suspect]
     Dosage: 2 DF, WITHIN AN HOUR
     Dates: start: 20130603, end: 20130603

REACTIONS (6)
  - Abdominal hernia [Unknown]
  - Somnolence [Not Recovered/Not Resolved]
  - Back pain [Unknown]
  - Exposure during pregnancy [Unknown]
  - Extra dose administered [Unknown]
  - Fatigue [Unknown]
